FAERS Safety Report 7221385-7 (Version None)
Quarter: 2011Q1

REPORT INFORMATION
  Report Type: 
  Country: None (occurrence: None)
  Receive Date: 20110112
  Receipt Date: 20110103
  Transmission Date: 20110831
  Serious: Yes (Hospitalization, Other)
  Sender: FDA-Public Use
  Company Number: US-ASTRAZENECA-2011SE00384

PATIENT
  Age: 18 Month
  Sex: Female
  Weight: 8.2 kg

DRUGS (8)
  1. ALBUTEROL [Concomitant]
     Dosage: EVERY 4 HOURS
     Dates: start: 20090601
  2. PULMICORT [Suspect]
     Dosage: EVERY 6 HOURS
     Route: 055
  3. TEGRETOL [Concomitant]
     Dosage: 5 ML THREE TIMES DAILY AND 6ML ONE TIME A DAY
     Dates: start: 20090501
  4. PHENOBARBITAL [Concomitant]
     Dosage: 5 ML EVERY MORNING AND 7ML EVERY AFTERNOON
     Route: 048
     Dates: start: 20080925
  5. TOPAMAX [Concomitant]
     Dosage: 10 ML EVERY MORNING AND 14 ML EVERY AFTERNOON
     Route: 048
     Dates: start: 20090101
  6. PREGABALIN [Suspect]
     Dosage: 15 MG/ML TWO TIMES A DAY, TOTAL DAILY DOSE OF 27.1 MG
     Route: 050
     Dates: start: 20090821
  7. BACLOFEN [Concomitant]
     Route: 048
     Dates: start: 20081101
  8. VITAMIN D [Concomitant]
     Dates: start: 20090601

REACTIONS (8)
  - RESPIRATORY DISTRESS [None]
  - SALIVARY HYPERSECRETION [None]
  - CONVULSION [None]
  - SNORING [None]
  - RHINORRHOEA [None]
  - COUGH [None]
  - DYSPNOEA [None]
  - BREATH SOUNDS ABNORMAL [None]
